FAERS Safety Report 14563132 (Version 1)
Quarter: 2018Q1

REPORT INFORMATION
  Report Type: Report from Study
  Country: US (occurrence: US)
  Receive Date: 20180222
  Receipt Date: 20180222
  Transmission Date: 20180509
  Serious: Yes (Hospitalization, Other)
  Sender: FDA-Public Use
  Company Number: US-SHIRE-US201806776

PATIENT
  Age: 39 Year
  Sex: Female

DRUGS (1)
  1. NATPARA (PARATHYROID HORMONE) [Suspect]
     Active Substance: PARATHYROID HORMONE
     Indication: HYPOPARATHYROIDISM
     Route: 065

REACTIONS (7)
  - Cardiac disorder [Unknown]
  - Bone density decreased [Unknown]
  - Renal failure [Unknown]
  - Arrhythmia [Unknown]
  - Renal disorder [Unknown]
  - Tetany [Unknown]
  - Cardiovascular disorder [Unknown]
